FAERS Safety Report 15198389 (Version 1)
Quarter: 2018Q3

REPORT INFORMATION
  Report Type: Other
  Country: KP (occurrence: KP)
  Receive Date: 20180725
  Receipt Date: 20180725
  Transmission Date: 20181010
  Serious: Yes (Hospitalization, Other)
  Sender: FDA-Public Use
  Company Number: KP-BIO-PHARM, INC -2052741

PATIENT
  Age: 86 Year
  Sex: Female

DRUGS (1)
  1. MEMANTINE ORAL SOLUTION 2MG/ML [Suspect]
     Active Substance: MEMANTINE

REACTIONS (3)
  - Myoclonus [None]
  - Vomiting [None]
  - Nausea [Recovered/Resolved]
